FAERS Safety Report 9460453 (Version 1)
Quarter: 2013Q3

REPORT INFORMATION
  Report Type: Spontaneous
  Country: IT (occurrence: IT)
  Receive Date: 20130815
  Receipt Date: 20130815
  Transmission Date: 20140515
  Serious: Yes (Death, Other)
  Sender: FDA-Public Use
  Company Number: PHHY2013IT085235

PATIENT
  Age: 35 Year
  Sex: Male

DRUGS (2)
  1. METHADONE [Suspect]
  2. BENZOYLECGONINE [Suspect]

REACTIONS (2)
  - Accident at work [Fatal]
  - Substance-induced psychotic disorder [Unknown]
